FAERS Safety Report 19948217 (Version 1)
Quarter: 2021Q4

REPORT INFORMATION
  Report Type: Spontaneous
  Country: IE (occurrence: IE)
  Receive Date: 20211012
  Receipt Date: 20211012
  Transmission Date: 20220303
  Serious: Yes (Hospitalization)
  Sender: FDA-Public Use
  Company Number: IE-PFIZER INC-202101294279

PATIENT
  Age: 3 Year
  Sex: Male

DRUGS (1)
  1. GENOTROPIN [Suspect]
     Active Substance: SOMATROPIN
     Indication: Growth hormone deficiency
     Dosage: 0.5 MG, DAILY

REACTIONS (5)
  - Tremor [Recovering/Resolving]
  - Seizure [Recovering/Resolving]
  - Malaise [Recovering/Resolving]
  - Diabetes insipidus [Recovering/Resolving]
  - Blood sodium abnormal [Recovering/Resolving]
